FAERS Safety Report 9924036 (Version 1)
Quarter: 2014Q1

REPORT INFORMATION
  Report Type: Spontaneous
  Country: DE (occurrence: DE)
  Receive Date: 20140225
  Receipt Date: 20140225
  Transmission Date: 20141002
  Serious: Yes (Other)
  Sender: FDA-Public Use
  Company Number: DE-JNJFOC-20140215055

PATIENT
  Sex: Female

DRUGS (2)
  1. ZYRTEC [Suspect]
     Route: 065
  2. ZYRTEC [Suspect]
     Indication: MULTIPLE ALLERGIES
     Route: 065
     Dates: start: 1997

REACTIONS (3)
  - Haematoma [Unknown]
  - Unevaluable event [Unknown]
  - Asthenia [Unknown]
